FAERS Safety Report 10516689 (Version 5)
Quarter: 2015Q3

REPORT INFORMATION
  Report Type: Report from Study
  Country: US (occurrence: US)
  Receive Date: 20141014
  Receipt Date: 20150717
  Transmission Date: 20151125
  Serious: Yes (Other)
  Sender: FDA-Public Use
  Company Number: US-SANOFI-AVENTIS-2013SA047019

PATIENT
  Age: 39 Year
  Sex: Female

DRUGS (4)
  1. NOVOCAIN [Concomitant]
     Active Substance: PROCAINE HYDROCHLORIDE
     Dates: start: 20130417
  2. BUSPAR [Concomitant]
     Active Substance: BUSPIRONE HYDROCHLORIDE
     Indication: ANXIETY
  3. AUBAGIO [Suspect]
     Active Substance: TERIFLUNOMIDE
     Indication: MULTIPLE SCLEROSIS
     Route: 048
     Dates: start: 20130326
  4. CLONOPIN [Concomitant]
     Active Substance: CLONAZEPAM
     Indication: ANXIETY

REACTIONS (16)
  - Pain [Recovered/Resolved]
  - Fatigue [Unknown]
  - Hemiparesis [Unknown]
  - Migraine [Recovered/Resolved]
  - Muscular weakness [Unknown]
  - Headache [Unknown]
  - Weight decreased [Unknown]
  - Pain in jaw [Recovered/Resolved]
  - Photosensitivity reaction [Unknown]
  - Emotional disorder [Unknown]
  - Cognitive disorder [Not Recovered/Not Resolved]
  - Dyspnoea [Recovered/Resolved]
  - Psychogenic seizure [Unknown]
  - Hypoaesthesia [Unknown]
  - Thinking abnormal [Unknown]
  - Alopecia [Recovered/Resolved]

NARRATIVE: CASE EVENT DATE: 20130419
